FAERS Safety Report 14414998 (Version 1)
Quarter: 2018Q1

REPORT INFORMATION
  Report Type: Spontaneous
  Country: US (occurrence: US)
  Receive Date: 20180118
  Receipt Date: 20180118
  Transmission Date: 20180509
  Serious: No
  Sender: FDA-Public Use
  Company Number: None

PATIENT
  Age: 60 Year
  Sex: Female

DRUGS (7)
  1. VITAMIN D [Concomitant]
     Active Substance: CHOLECALCIFEROL
  2. IBRANCE [Suspect]
     Active Substance: PALBOCICLIB
     Dosage: 125 MG QD FOR 21 DAYS PO
     Route: 048
     Dates: start: 20171222, end: 20180112
  3. CALCIUM [Concomitant]
     Active Substance: CALCIUM
  4. JUICE PLUS FIBRE [Concomitant]
  5. FASLODEX [Concomitant]
     Active Substance: FULVESTRANT
  6. PROLIA [Concomitant]
     Active Substance: DENOSUMAB
  7. FISH OIL [Concomitant]
     Active Substance: FISH OIL

REACTIONS (2)
  - Thrombocytopenia [None]
  - Neutropenia [None]

NARRATIVE: CASE EVENT DATE: 20180118
